FAERS Safety Report 10480587 (Version 2)
Quarter: 2014Q4

REPORT INFORMATION
  Report Type: Spontaneous
  Country: US (occurrence: US)
  Receive Date: 20140929
  Receipt Date: 20141125
  Transmission Date: 20150528
  Serious: Yes (Other)
  Sender: FDA-Public Use
  Company Number: US-009507513-1409USA007866

PATIENT
  Age: 27 Year
  Sex: Female

DRUGS (1)
  1. NEXPLANON [Suspect]
     Active Substance: ETONOGESTREL
     Indication: CONTRACEPTION
     Dosage: 1 ROD/ 3YEARS
     Route: 059
     Dates: start: 20140905, end: 20140909

REACTIONS (7)
  - Implant site paraesthesia [Not Recovered/Not Resolved]
  - Injection site discolouration [Unknown]
  - Implant site hypoaesthesia [Not Recovered/Not Resolved]
  - Implant site rash [Recovered/Resolved]
  - Rash [Unknown]
  - Pruritus [Not Recovered/Not Resolved]
  - Implant site pain [Recovered/Resolved]

NARRATIVE: CASE EVENT DATE: 201409
